FAERS Safety Report 8025866-8 (Version None)
Quarter: 2012Q1

REPORT INFORMATION
  Report Type: 
  Country: None (occurrence: None)
  Receive Date: 20120105
  Receipt Date: 20120102
  Transmission Date: 20120608
  Serious: Yes (Hospitalization)
  Sender: FDA-Public Use
  Company Number: PL-ROCHE-1027399

PATIENT
  Age: 53 Year
  Sex: Female
  Weight: 64.5 kg

DRUGS (1)
  1. VEMURAFENIB [Suspect]
     Indication: METASTATIC MALIGNANT MELANOMA

REACTIONS (3)
  - NAUSEA [None]
  - DIZZINESS [None]
  - LOSS OF CONSCIOUSNESS [None]
